FAERS Safety Report 24162116 (Version 1)
Quarter: 2024Q3

REPORT INFORMATION
  Report Type: Spontaneous
  Country: US (occurrence: None)
  Receive Date: 20240731
  Receipt Date: 20240731
  Transmission Date: 20241017
  Serious: Yes (Other)
  Sender: Public
  Company Number: None

PATIENT
  Age: 57 Year
  Sex: Female
  Weight: 80.55 kg

DRUGS (2)
  1. OCREVUS [Suspect]
     Active Substance: OCRELIZUMAB
     Indication: Multiple sclerosis
     Dosage: OTHER FREQUENCY : EVERY 6 MONTHS;?
     Route: 041
     Dates: start: 20240730, end: 20240730
  2. OCREVUS [Concomitant]
     Active Substance: OCRELIZUMAB
     Dates: start: 20240730, end: 20240730

REACTIONS (2)
  - Blood pressure increased [None]
  - Infusion related reaction [None]

NARRATIVE: CASE EVENT DATE: 20240730
